FAERS Safety Report 19609186 (Version 1)
Quarter: 2021Q3

REPORT INFORMATION
  Report Type: Spontaneous
  Country: US (occurrence: US)
  Receive Date: 20210725
  Receipt Date: 20210725
  Transmission Date: 20211014
  Serious: No
  Sender: FDA-Public Use
  Company Number: None

PATIENT
  Age: 40 Year
  Sex: Female
  Weight: 109.8 kg

DRUGS (2)
  1. METHIMAZOLE. [Concomitant]
     Active Substance: METHIMAZOLE
  2. FLUCONAZOLE ORAL COMMON BRAND(S): DIFLUCAN GENERIC NAME(S): FLUCONAZOL [Suspect]
     Active Substance: FLUCONAZOLE
     Indication: FUNGAL INFECTION
     Dosage: ?          QUANTITY:1 TABLET(S);OTHER FREQUENCY:TAKE 1 BY MOUTH;?
     Route: 048
     Dates: start: 20210725, end: 20210725

REACTIONS (3)
  - Pain [None]
  - Sensitive skin [None]
  - Rash [None]

NARRATIVE: CASE EVENT DATE: 20210725
